FAERS Safety Report 23846591 (Version 1)
Quarter: 2024Q2

REPORT INFORMATION
  Report Type: Spontaneous
  Country: US (occurrence: US)
  Receive Date: 20240513
  Receipt Date: 20240513
  Transmission Date: 20240715
  Serious: No
  Sender: FDA-Public Use
  Company Number: US-Blueprint Medicines Corporation-3441

PATIENT
  Sex: Female

DRUGS (2)
  1. AYVAKIT [Suspect]
     Active Substance: AVAPRITINIB
     Indication: Systemic mastocytosis
     Route: 065
     Dates: start: 20240323
  2. TYPHOID VACCINE [Suspect]
     Active Substance: TYPHOID VACCINE
     Indication: Immunisation
     Route: 065

REACTIONS (2)
  - Presyncope [Unknown]
  - Flushing [Unknown]
